FAERS Safety Report 20976279 (Version 1)
Quarter: 2022Q2

REPORT INFORMATION
  Report Type: Spontaneous
  Country: CA (occurrence: CA)
  Receive Date: 20220617
  Receipt Date: 20220617
  Transmission Date: 20220721
  Serious: Yes (Life-Threatening, Other)
  Sender: FDA-Public Use
  Company Number: CA-drreddys-SPO/CAN/22/0151166

PATIENT
  Age: 57 Year
  Sex: Female
  Weight: 61.290 kg

DRUGS (2)
  1. PROGESTERONE [Suspect]
     Active Substance: PROGESTERONE
     Indication: Menopause
     Route: 048
  2. ESTRADIOL [Suspect]
     Active Substance: ESTRADIOL
     Indication: Menopause
     Route: 048

REACTIONS (2)
  - Breast dysplasia [Recovered/Resolved with Sequelae]
  - Breast cancer [Recovered/Resolved with Sequelae]
